FAERS Safety Report 5232499-5 (Version None)
Quarter: 2007Q1

REPORT INFORMATION
  Report Type: 
  Country: None (occurrence: None)
  Receive Date: 20070207
  Receipt Date: 20070130
  Transmission Date: 20070707
  Serious: Yes (Other)
  Sender: FDA-Public Use
  Company Number: TH-GILEAD-2007-0011149

PATIENT
  Age: 26 Year
  Sex: Male
  Weight: 53.3 kg

DRUGS (11)
  1. EMTRICITABINE [Suspect]
     Indication: HIV INFECTION
     Route: 048
     Dates: start: 20061218, end: 20061231
  2. DDI-EC [Suspect]
     Indication: HIV INFECTION
     Route: 048
     Dates: start: 20061218, end: 20061231
  3. ATAZANAVIR [Suspect]
     Indication: HIV INFECTION
     Route: 048
     Dates: start: 20061218, end: 20061231
  4. DAPSONE [Suspect]
     Indication: PROPHYLAXIS
  5. FLUCONAZOLE [Concomitant]
     Indication: PROPHYLAXIS
  6. THEOPHYLLINE [Concomitant]
  7. BROMHEXINE [Concomitant]
  8. CETIRIZINE HCL [Concomitant]
  9. TRIAMCINOLONE [Concomitant]
     Indication: SEBORRHOEIC DERMATITIS
  10. ACYCLOVIR [Concomitant]
     Indication: HERPES SIMPLEX
  11. PODOPHYLLIN [Concomitant]
     Indication: ANOGENITAL WARTS

REACTIONS (1)
  - DRUG HYPERSENSITIVITY [None]
